FAERS Safety Report 9019641 (Version 1)
Quarter: 2013Q1

REPORT INFORMATION
  Report Type: Spontaneous
  Country: US (occurrence: US)
  Receive Date: 20130118
  Receipt Date: 20130118
  Transmission Date: 20140127
  Serious: No
  Sender: FDA-Public Use
  Company Number: US-BRISTOL-MYERS SQUIBB COMPANY-16680480

PATIENT
  Age: 6 Year
  Sex: Male
  Weight: 42.63 kg

DRUGS (2)
  1. ABILIFY [Suspect]
     Indication: AUTISM
     Route: 048
     Dates: start: 20120609
  2. LEXAPRO [Suspect]

REACTIONS (2)
  - Vomiting [Unknown]
  - Decreased appetite [Unknown]
